FAERS Safety Report 23082593 (Version 1)
Quarter: 2023Q4

REPORT INFORMATION
  Report Type: Report from Study
  Country: US (occurrence: US)
  Receive Date: 20231019
  Receipt Date: 20231019
  Transmission Date: 20240110
  Serious: Yes (Other)
  Sender: FDA-Public Use
  Company Number: US-ABBVIE-5413777

PATIENT
  Sex: Female

DRUGS (2)
  1. HUMIRA [Suspect]
     Active Substance: ADALIMUMAB
     Indication: Hidradenitis
     Dosage: LAST ADMIN DATE 2023
     Route: 058
     Dates: start: 20230316
  2. HUMIRA [Suspect]
     Active Substance: ADALIMUMAB
     Route: 058
     Dates: start: 2023

REACTIONS (4)
  - Nephrolithiasis [Recovering/Resolving]
  - Spinal operation [Unknown]
  - Hidradenitis [Unknown]
  - Headache [Unknown]

NARRATIVE: CASE EVENT DATE: 20230101
